FAERS Safety Report 8134102 (Version 3)
Quarter: 2013Q1

REPORT INFORMATION
  Report Type: Spontaneous
  Country: US (occurrence: US)
  Receive Date: 20110913
  Receipt Date: 20130218
  Transmission Date: 20140127
  Serious: Yes (Hospitalization, Other)
  Sender: FDA-Public Use
  Company Number: US-JNJFOC-20110901903

PATIENT
  Age: 87 Year
  Sex: Female
  Weight: 77.11 kg

DRUGS (12)
  1. FLEXERIL [Suspect]
     Indication: BACK PAIN
     Route: 048
     Dates: start: 20110524, end: 20110531
  2. AMBIEN [Concomitant]
     Indication: INSOMNIA
     Route: 048
     Dates: start: 200801
  3. VICODIN [Concomitant]
     Indication: PAIN
     Route: 065
     Dates: start: 20050414
  4. SUNITINIB [Concomitant]
     Indication: METASTATIC RENAL CELL CARCINOMA
     Route: 048
     Dates: start: 20110613
  5. SUNITINIB [Concomitant]
     Indication: METASTATIC RENAL CELL CARCINOMA
     Route: 048
     Dates: start: 20080220, end: 20110518
  6. NORVASC [Concomitant]
     Indication: HYPERTENSION
     Route: 065
  7. ASA [Concomitant]
     Route: 065
  8. FLONASE [Concomitant]
     Route: 065
  9. SYNTHROID [Concomitant]
     Indication: HYPOTHYROIDISM
     Route: 065
  10. MAGNESIUM [Concomitant]
     Indication: SUPPLEMENTATION THERAPY
     Route: 065
  11. PAXIL [Concomitant]
     Indication: DEPRESSION
     Route: 065
  12. DIOVAN [Concomitant]
     Route: 065

REACTIONS (1)
  - Hypertensive emergency [Recovered/Resolved]
